FAERS Safety Report 5819444-6 (Version None)
Quarter: 2008Q3

REPORT INFORMATION
  Report Type: 
  Country: None (occurrence: None)
  Receive Date: 20080723
  Receipt Date: 20080715
  Transmission Date: 20090109
  Serious: Yes (Disabling, Other)
  Sender: FDA-Public Use
  Company Number: GB-ABBOTT-08P-167-0451605-00

PATIENT
  Sex: Female

DRUGS (6)
  1. HUMIRA [Suspect]
     Indication: RHEUMATOID ARTHRITIS
     Route: 058
     Dates: start: 20070801, end: 20080426
  2. LEVOTHYROXINE SODIUM [Concomitant]
     Indication: DRUG USE FOR UNKNOWN INDICATION
  3. ACETYLSALICYLIC ACID SRT [Concomitant]
     Indication: DRUG USE FOR UNKNOWN INDICATION
     Route: 048
  4. ALBUTEROL [Concomitant]
     Indication: DRUG USE FOR UNKNOWN INDICATION
  5. BECLOMETHASONE DIPROPIONATE [Concomitant]
     Indication: DRUG USE FOR UNKNOWN INDICATION
  6. PREDNISOLONE [Concomitant]
     Indication: DRUG USE FOR UNKNOWN INDICATION

REACTIONS (21)
  - ASTHMA [None]
  - COUGH [None]
  - DEAFNESS UNILATERAL [None]
  - DRY MOUTH [None]
  - DYSPNOEA [None]
  - EAR INFECTION [None]
  - ERYTHEMA [None]
  - FATIGUE [None]
  - HYPERHIDROSIS [None]
  - HYPERSOMNIA [None]
  - JOINT SWELLING [None]
  - LETHARGY [None]
  - MALAISE [None]
  - ORAL PAIN [None]
  - PEAK EXPIRATORY FLOW RATE DECREASED [None]
  - PRURITUS [None]
  - PYREXIA [None]
  - RASH [None]
  - SINUS CONGESTION [None]
  - URTICARIA [None]
  - WHEEZING [None]
